FAERS Safety Report 9556138 (Version 1)
Quarter: 2013Q3

REPORT INFORMATION
  Report Type: Spontaneous
  Country: US (occurrence: None)
  Receive Date: 20130724
  Receipt Date: 20130724
  Transmission Date: 20140515
  Serious: No
  Sender: FDA-Public Use
  Company Number: PHEH2013US006467

PATIENT
  Age: 44 Year
  Sex: Female
  Weight: 71.2 kg

DRUGS (3)
  1. GILENYA (FINGOLIMOD) CAPSULE, 0.5MG [Suspect]
     Indication: MULTIPLE SCLEROSIS
     Route: 048
     Dates: start: 20130311
  2. BENAZEPRIL [Concomitant]
  3. BACLOFEN [Concomitant]

REACTIONS (2)
  - Night sweats [None]
  - Rash [None]
